FAERS Safety Report 6699434-4 (Version None)
Quarter: 2010Q2

REPORT INFORMATION
  Report Type: 
  Country: None (occurrence: None)
  Receive Date: 20100427
  Receipt Date: 20100420
  Transmission Date: 20101027
  Serious: Yes (Hospitalization, Other)
  Sender: FDA-Public Use
  Company Number: JP-MERCK-1004USA01443

PATIENT
  Age: 84 Year
  Sex: Female
  Weight: 40 kg

DRUGS (2)
  1. FOSAMAX [Suspect]
     Indication: OSTEOPOROSIS
     Route: 048
     Dates: start: 20050101
  2. ELCITONIN [Concomitant]
     Dosage: THE ONCE ADMINISTRATION AMOUNT IS UNCERTAIN.
     Route: 058
     Dates: end: 20090801

REACTIONS (1)
  - FEMUR FRACTURE [None]
